FAERS Safety Report 22257302 (Version 1)
Quarter: 2023Q2

REPORT INFORMATION
  Report Type: Spontaneous
  Country: US (occurrence: US)
  Receive Date: 20230427
  Receipt Date: 20230427
  Transmission Date: 20230721
  Serious: No
  Sender: FDA-Public Use
  Company Number: US-VIIV HEALTHCARE LIMITED-US2023056001

PATIENT
  Age: 48 Year
  Sex: Female

DRUGS (2)
  1. RILPIVIRINE [Suspect]
     Active Substance: RILPIVIRINE
     Indication: HIV infection
     Dosage: UNK UNK, Z, EVERY 2-MONTH DOSING, CABOTEGRAVIR 600MG/3ML AND RILPIVIRINE 900MG/3 ML
     Route: 065
     Dates: start: 20220420, end: 20230313
  2. CABOTEGRAVIR [Suspect]
     Active Substance: CABOTEGRAVIR
     Indication: HIV infection
     Dosage: UNK UNK, Z, EVERY 2-MONTH DOSING, CABOTEGRAVIR 600MG/3ML AND RILPIVIRINE 900MG/3 ML
     Route: 065
     Dates: start: 20220420, end: 20230313

REACTIONS (2)
  - Blood HIV RNA increased [Unknown]
  - Viral mutation identified [Unknown]

NARRATIVE: CASE EVENT DATE: 20230116
